FAERS Safety Report 5123504-5 (Version None)
Quarter: 2006Q4

REPORT INFORMATION
  Report Type: 
  Country: None (occurrence: None)
  Receive Date: 20061009
  Receipt Date: 20060927
  Transmission Date: 20070319
  Serious: Yes (Other)
  Sender: FDA-Public Use
  Company Number: PHBS2006ES14833

PATIENT
  Age: 68 Year
  Sex: Female

DRUGS (4)
  1. ZOMETA [Suspect]
     Indication: OSTEOPOROSIS
     Dosage: 4 MG, QMO
     Route: 065
     Dates: start: 20040501, end: 20060227
  2. SEROXAT [Concomitant]
  3. DORKEN [Concomitant]
  4. ORFIDAL [Concomitant]

REACTIONS (4)
  - HYPERPLASIA [None]
  - INFECTION [None]
  - INFLAMMATION [None]
  - OSTEONECROSIS [None]
